FAERS Safety Report 10610279 (Version 1)
Quarter: 2014Q4

REPORT INFORMATION
  Report Type: Spontaneous
  Country: CH (occurrence: None)
  Receive Date: 20141124
  Receipt Date: 20141124
  Transmission Date: 20150529
  Serious: No
  Sender: FDA-Public Use
  Company Number: 1503763

PATIENT
  Age: 76 Year
  Sex: Female

DRUGS (3)
  1. VALSARTAN. [Suspect]
     Active Substance: VALSARTAN
     Indication: HYPERTENSION
     Dosage: ONCE DAILY AT 8AM
  2. VALPROATE [Concomitant]
     Active Substance: VALPROATE SODIUM
  3. LITHIUM [Suspect]
     Active Substance: LITHIUM CARBONATE
     Indication: BIPOLAR DISORDER
     Dosage: 1-2 TIMES DAILY

REACTIONS (7)
  - Overdose [None]
  - Toxicity to various agents [None]
  - Mental impairment [None]
  - Confusional state [None]
  - Mania [None]
  - Refusal of treatment by patient [None]
  - Extrapyramidal disorder [None]
